FAERS Safety Report 8301613-7 (Version None)
Quarter: 2012Q2

REPORT INFORMATION
  Report Type: 
  Country: None (occurrence: None)
  Receive Date: 20120420
  Receipt Date: 20120416
  Transmission Date: 20120825
  Serious: Yes (Life-Threatening, Hospitalization)
  Sender: FDA-Public Use
  Company Number: JP-ELI_LILLY_AND_COMPANY-JP201203002033

PATIENT
  Sex: Female
  Weight: 57 kg

DRUGS (17)
  1. ALIMTA [Suspect]
     Indication: LARGE CELL LUNG CANCER STAGE III
     Dosage: 700 MG/M2, UNK
     Route: 042
     Dates: start: 20100720, end: 20101013
  2. VITAMIN B12 [Concomitant]
     Dosage: 1 G, UNK
     Route: 030
     Dates: start: 20100712
  3. VITAMIN B12 [Concomitant]
     Dosage: 1 G, UNK
     Route: 030
     Dates: start: 20120116
  4. SELBEX [Concomitant]
     Dosage: 50 MG, UNK
     Route: 048
  5. LEVOTHYROXINE SODIUM [Concomitant]
     Dosage: 75 UG, TID
     Route: 048
  6. MAGMITT [Concomitant]
     Dosage: 1500 MG, UNK
     Route: 048
  7. GASCON [Concomitant]
     Dosage: 120 MG, UNK
     Route: 048
  8. ASPIRIN [Concomitant]
     Dosage: 100 MG, UNK
     Route: 048
  9. FOLIAMIN [Concomitant]
     Dosage: 0.5 MG, UNK
     Route: 048
     Dates: start: 20120116, end: 20120320
  10. CISPLATIN [Concomitant]
     Indication: LARGE CELL LUNG CANCER STAGE III
     Dosage: 100 MG/M2, UNK
     Route: 042
     Dates: start: 20100720, end: 20101013
  11. VITAMIN B12 [Concomitant]
     Dosage: 1000 UNK, UNK
     Route: 048
  12. VITAMIN B12 [Concomitant]
     Dosage: 1 G, UNK
     Route: 030
     Dates: start: 20101116
  13. ALIMTA [Suspect]
     Dosage: 700 MG/M2, UNK
     Route: 042
     Dates: start: 20101116, end: 20101214
  14. VINORELBINE [Concomitant]
     Indication: LARGE CELL LUNG CANCER STAGE III
     Dosage: 35 MG/M2, UNK
     Dates: start: 20110708, end: 20110927
  15. FOLIAMIN [Concomitant]
     Indication: PROPHYLAXIS
     Dosage: 0.5 MG, UNK
     Route: 048
     Dates: start: 20100712, end: 20101231
  16. ALIMTA [Suspect]
     Dosage: 700 MG/M2, UNK
     Route: 042
     Dates: start: 20120118, end: 20120214
  17. NORVASC [Concomitant]
     Dosage: 2.5 MG, UNK
     Route: 048

REACTIONS (7)
  - RASH [None]
  - ENTEROCOLITIS [None]
  - CANDIDIASIS [None]
  - LIVER DISORDER [None]
  - HAEMOGLOBIN DECREASED [None]
  - DECREASED APPETITE [None]
  - MALAISE [None]
